FAERS Safety Report 5873365-1 (Version None)
Quarter: 2008Q3

REPORT INFORMATION
  Report Type: 
  Country: None (occurrence: None)
  Receive Date: 20080903
  Receipt Date: 20080821
  Transmission Date: 20090109
  Serious: Yes (Congenital Anomaly)
  Sender: FDA-Public Use
  Company Number: B0396812A

PATIENT
  Sex: Female

DRUGS (2)
  1. LAMICTAL [Suspect]
     Indication: CONVULSION
     Dosage: TRANSPLACENTARY
     Route: 064
  2. TOPIRAMATE [Suspect]
     Indication: CONVULSION
     Dosage: TRANSPLACENTARY
     Route: 064

REACTIONS (3)
  - HERNIA CONGENITAL [None]
  - HYDROCELE [None]
  - MATERNAL DRUGS AFFECTING FOETUS [None]
